FAERS Safety Report 11214147 (Version 1)
Quarter: 2015Q2

REPORT INFORMATION
  Report Type: Spontaneous
  Country: US (occurrence: US)
  Receive Date: 20150623
  Receipt Date: 20150623
  Transmission Date: 20150821
  Serious: No
  Sender: FDA-Public Use
  Company Number: US-ASTRAZENECA-2015SE57278

PATIENT
  Sex: Female
  Weight: 90.7 kg

DRUGS (3)
  1. BYDUREON [Suspect]
     Active Substance: EXENATIDE
     Indication: TYPE 2 DIABETES MELLITUS
     Route: 058
  2. METFORNIN [Concomitant]
     Indication: TYPE 2 DIABETES MELLITUS
  3. INVOKANA [Concomitant]
     Active Substance: CANAGLIFLOZIN
     Indication: TYPE 2 DIABETES MELLITUS

REACTIONS (4)
  - Injection site pain [Unknown]
  - Underdose [Unknown]
  - Injection site extravasation [Unknown]
  - Injection site haemorrhage [Unknown]
